FAERS Safety Report 8826604 (Version 1)
Quarter: 2012Q4

REPORT INFORMATION
  Report Type: 
  Country: DE (occurrence: DE)
  Receive Date: 20121005
  Receipt Date: 20121005
  Transmission Date: 20130627
  Serious: Yes (Hospitalization, Disabling)
  Sender: FDA-Public Use
  Company Number: CHPA2012DE020002

PATIENT
  Age: 92 Year
  Sex: Female

DRUGS (6)
  1. TAVEGIL [Suspect]
     Indication: SEDATION
     Dosage: 1 DF, QN, From 2-3 years ago
     Route: 048
     Dates: end: 201209
  2. ATOSIL [Concomitant]
     Dosage: Unk, Unk
  3. MELPERON ^CT-ARZNEIMITTEL^ [Concomitant]
     Dosage: Unk, Unk
  4. MCP [Concomitant]
     Dosage: Unk, Unk
     Dates: end: 2011
  5. MESTINON [Concomitant]
     Dosage: Unk, Unk
  6. L-DOPA [Concomitant]
     Dosage: Unk, Unk

REACTIONS (2)
  - Tardive dyskinesia [Recovered/Resolved]
  - Off label use [Unknown]
